FAERS Safety Report 10908630 (Version 1)
Quarter: 2015Q1

REPORT INFORMATION
  Report Type: Spontaneous
  Country: FR (occurrence: FR)
  Receive Date: 20150312
  Receipt Date: 20150312
  Transmission Date: 20150721
  Serious: Yes (Hospitalization)
  Sender: FDA-Public Use
  Company Number: FR-SA-2015SA027893

PATIENT
  Age: 18 Year
  Sex: Male

DRUGS (20)
  1. RIFADINE [Suspect]
     Active Substance: RIFAMPIN
     Route: 048
     Dates: start: 20140516, end: 20140707
  2. SPECIAFOLDINE [Concomitant]
     Active Substance: FOLIC ACID
  3. GAVISCON [Concomitant]
     Active Substance: ALUMINUM HYDROXIDE\MAGNESIUM CARBONATE
  4. LEVOCARNIL [Concomitant]
     Active Substance: LEVOCARNITINE
  5. RIVOTRIL [Concomitant]
     Active Substance: CLONAZEPAM
  6. VANCOMYCIN [Concomitant]
     Active Substance: VANCOMYCIN
     Route: 042
  7. URBANYL [Concomitant]
     Active Substance: CLOBAZAM
  8. BACTRIM [Concomitant]
     Active Substance: SULFAMETHOXAZOLE\TRIMETHOPRIM
  9. ORAMORPH SR SUSTAINED RELEASE [Concomitant]
     Active Substance: MORPHINE SULFATE
  10. AUGMENTIN [Concomitant]
     Active Substance: AMOXICILLIN\CLAVULANATE POTASSIUM
  11. PARACETAMOL [Concomitant]
     Active Substance: ACETAMINOPHEN
  12. ATARAX [Concomitant]
     Active Substance: HYDROXYZINE\HYDROXYZINE HYDROCHLORIDE
  13. OXYGEN. [Concomitant]
     Active Substance: OXYGEN
  14. FORLAX [Concomitant]
     Active Substance: POLYETHYLENE GLYCOL 4000
  15. INEXIUM [Concomitant]
     Active Substance: ESOMEPRAZOLE
  16. SKENAN [Concomitant]
     Active Substance: MORPHINE SULFATE
  17. TARDYFERON [Concomitant]
     Active Substance: FERROUS SULFATE\FOLIC ACID
  18. DEPAKINE [Concomitant]
     Active Substance: VALPROATE SODIUM
  19. LIORESAL [Concomitant]
     Active Substance: BACLOFEN
  20. CALCIDOSE [Concomitant]
     Active Substance: CALCIUM CARBONATE

REACTIONS (1)
  - Dystonia [Recovering/Resolving]

NARRATIVE: CASE EVENT DATE: 20140705
